FAERS Safety Report 8620567-7 (Version None)
Quarter: 2012Q3

REPORT INFORMATION
  Report Type: 
  Country: None (occurrence: None)
  Receive Date: 20120824
  Receipt Date: 20120814
  Transmission Date: 20120928
  Serious: Yes (Hospitalization)
  Sender: FDA-Public Use
  Company Number: US-ACTELION-A-NJ2012-69219

PATIENT
  Age: 69 Year
  Sex: Female

DRUGS (1)
  1. TRACLEER [Suspect]
     Indication: PULMONARY ARTERIAL HYPERTENSION
     Dosage: UNK
     Route: 048
     Dates: start: 20120601

REACTIONS (8)
  - DEHYDRATION [None]
  - FATIGUE [None]
  - ANAEMIA [None]
  - DECREASED APPETITE [None]
  - INFLUENZA [None]
  - VOMITING [None]
  - NAUSEA [None]
  - PRESYNCOPE [None]
